FAERS Safety Report 21640104 (Version 1)
Quarter: 2022Q4

REPORT INFORMATION
  Report Type: Spontaneous
  Country: IL (occurrence: IL)
  Receive Date: 20221124
  Receipt Date: 20221124
  Transmission Date: 20230112
  Serious: Yes (Other)
  Sender: FDA-Public Use
  Company Number: IL-ALLERGAN-2238511US

PATIENT
  Sex: Male

DRUGS (4)
  1. RESTASIS [Suspect]
     Active Substance: CYCLOSPORINE
     Indication: Product used for unknown indication
     Dosage: UNK
  2. OFLOXACIN [Concomitant]
     Active Substance: OFLOXACIN
  3. SYSTANE HYDRATION PF PRESERVATIVE FREE [Concomitant]
     Active Substance: POLYETHYLENE GLYCOL 400\PROPYLENE GLYCOL
     Indication: Lacrimation decreased
  4. STERODEX [Concomitant]

REACTIONS (2)
  - Cataract [Unknown]
  - Ocular hyperaemia [Unknown]
